FAERS Safety Report 21445282 (Version 8)
Quarter: 2024Q2

REPORT INFORMATION
  Report Type: Spontaneous
  Country: CA (occurrence: CA)
  Receive Date: 20221012
  Receipt Date: 20240405
  Transmission Date: 20240716
  Serious: Yes (Other)
  Sender: FDA-Public Use
  Company Number: CA-CELLTRION INC.-2022CA016392

PATIENT

DRUGS (9)
  1. INFLECTRA [Suspect]
     Active Substance: INFLIXIMAB-DYYB
     Indication: Psoriasis
     Dosage: 400 MG INDUCTION DOSES AT WEEK 0, 2 AND 6, THEN EVERY 8 WEEKS
     Route: 042
     Dates: start: 20170426, end: 20170801
  2. INFLECTRA [Suspect]
     Active Substance: INFLIXIMAB-DYYB
     Dosage: 400 MG EVERY 6 WEEK
     Route: 042
     Dates: start: 20170926, end: 20171212
  3. INFLECTRA [Suspect]
     Active Substance: INFLIXIMAB-DYYB
     Dosage: 600 MG EVERY 6 WEEK
     Route: 042
     Dates: start: 20180306, end: 20180710
  4. INFLECTRA [Suspect]
     Active Substance: INFLIXIMAB-DYYB
     Dosage: 800 MG EVERY 6 WEEK
     Route: 042
     Dates: start: 20180821
  5. INFLECTRA [Suspect]
     Active Substance: INFLIXIMAB-DYYB
     Dosage: 800 MG EVERY 6 WEEK
     Route: 042
     Dates: start: 20220818
  6. INFLECTRA [Suspect]
     Active Substance: INFLIXIMAB-DYYB
     Dosage: 800 MG, AFTER 26 WEEKS AND 6 DAYS (PRESCRIBED EVERY 6 WEEKS)
     Route: 042
     Dates: start: 20230222
  7. INFLECTRA [Suspect]
     Active Substance: INFLIXIMAB-DYYB
     Dosage: 800 MG, EVERY 6 WEEK
     Route: 042
     Dates: start: 20231101
  8. INFLECTRA [Suspect]
     Active Substance: INFLIXIMAB-DYYB
     Dosage: 800 MG, EVERY 6 WEEK
     Route: 042
     Dates: start: 20240305
  9. XARELTO [Concomitant]
     Active Substance: RIVAROXABAN
     Dosage: 20 MG, FREQUENCY NOT AVAILABLE
     Route: 065

REACTIONS (6)
  - Poor peripheral circulation [Not Recovered/Not Resolved]
  - Condition aggravated [Unknown]
  - COVID-19 [Unknown]
  - Musculoskeletal stiffness [Unknown]
  - Off label use [Unknown]
  - Off label use [Unknown]

NARRATIVE: CASE EVENT DATE: 20170926
